FAERS Safety Report 25754016 (Version 1)
Quarter: 2025Q3

REPORT INFORMATION
  Report Type: Spontaneous
  Country: IN (occurrence: IN)
  Receive Date: 20250903
  Receipt Date: 20250903
  Transmission Date: 20251020
  Serious: Yes (Hospitalization)
  Sender: STRIDES
  Company Number: IN-STRIDES ARCOLAB LIMITED-2025SP011192

PATIENT
  Age: 48 Year
  Sex: Male

DRUGS (6)
  1. PREGABALIN [Suspect]
     Active Substance: PREGABALIN
     Indication: Generalised tonic-clonic seizure
     Route: 048
  2. PREGABALIN [Suspect]
     Active Substance: PREGABALIN
     Route: 048
  3. PREGABALIN [Suspect]
     Active Substance: PREGABALIN
     Route: 048
  4. TRAMADOL [Concomitant]
     Active Substance: TRAMADOL
     Indication: Product used for unknown indication
     Route: 048
  5. TRAMADOL [Concomitant]
     Active Substance: TRAMADOL
     Route: 048
  6. TRAMADOL [Concomitant]
     Active Substance: TRAMADOL
     Route: 048

REACTIONS (13)
  - Hypoaesthesia [Recovering/Resolving]
  - Irritability [Recovering/Resolving]
  - Gastrointestinal disorder [Recovering/Resolving]
  - Withdrawal syndrome [Recovering/Resolving]
  - Dyspnoea [Recovering/Resolving]
  - Headache [Recovering/Resolving]
  - Asthenia [Recovering/Resolving]
  - Confusional state [Recovering/Resolving]
  - Generalised oedema [Recovering/Resolving]
  - Weight increased [Recovering/Resolving]
  - Drug dependence [Recovering/Resolving]
  - Intentional overdose [Unknown]
  - Intentional product misuse [Recovering/Resolving]
